FAERS Safety Report 15568761 (Version 4)
Quarter: 2019Q1

REPORT INFORMATION
  Report Type: Spontaneous
  Country: PT (occurrence: PT)
  Receive Date: 20181031
  Receipt Date: 20190326
  Transmission Date: 20190417
  Serious: Yes (Hospitalization, Other)
  Sender: FDA-Public Use
  Company Number: PT-AUROBINDO-AUR-APL-2018-052644

PATIENT

DRUGS (24)
  1. DOXORUBICIN CONCENTRATE FOR SOLUTION FOR INFUSION [Suspect]
     Active Substance: DOXORUBICIN
     Dosage: UNK, 6 CYLCLES
     Route: 042
     Dates: start: 201603, end: 201610
  2. VINORELBINE [Suspect]
     Active Substance: VINORELBINE\VINORELBINE TARTRATE
     Indication: B-CELL LYMPHOMA
     Dosage: UNK, UNKNOWN FREQ. (6 CYCLES)
     Route: 065
     Dates: start: 201603, end: 201610
  3. OBINUTUZUMAB. [Suspect]
     Active Substance: OBINUTUZUMAB
     Indication: B-CELL LYMPHOMA
     Dosage: 2 CYLCES
     Route: 065
     Dates: start: 201708, end: 201709
  4. SERTRALINE [Suspect]
     Active Substance: SERTRALINE HYDROCHLORIDE
     Indication: PRODUCT USED FOR UNKNOWN INDICATION
     Dosage: UNK
     Route: 065
  5. TREANDA [Suspect]
     Active Substance: BENDAMUSTINE HYDROCHLORIDE
     Dosage: UNK, 4 CYLCLES
     Route: 042
     Dates: start: 201703, end: 201706
  6. GEMCITABINE [Suspect]
     Active Substance: GEMCITABINE\GEMCITABINE HYDROCHLORIDE
     Indication: B-CELL LYMPHOMA
     Dosage: UNK
     Route: 065
     Dates: start: 201603, end: 201610
  7. RITUXIMAB. [Suspect]
     Active Substance: RITUXIMAB
     Dosage: 375 MILLIGRAM/SQ. METER, 375 MG/M2, CYCLIC (4 CYCLES)
     Route: 065
     Dates: start: 2009
  8. ETOPOSIDE. [Suspect]
     Active Substance: ETOPOSIDE
     Indication: B-CELL LYMPHOMA
     Dosage: UNK UNK, CYCLICAL, 4 CYCLES
     Route: 065
     Dates: start: 201509, end: 201601
  9. VINORELBINE [Suspect]
     Active Substance: VINORELBINE\VINORELBINE TARTRATE
     Dosage: UNK UNK, CYCLIC (6 CYCLES)
     Route: 065
     Dates: start: 2014
  10. METHYLPREDNISOLONE. [Suspect]
     Active Substance: METHYLPREDNISOLONE
     Indication: B-CELL LYMPHOMA
     Dosage: UNK (4 CYCLES)
     Route: 065
     Dates: start: 201509, end: 201601
  11. OMEPRAZOLE. [Suspect]
     Active Substance: OMEPRAZOLE
     Dosage: 20 MILLIGRAM
     Route: 065
  12. OMEPRAZOLE. [Suspect]
     Active Substance: OMEPRAZOLE
     Dosage: 30 MILLIGRAM
     Route: 065
  13. TREANDA [Suspect]
     Active Substance: BENDAMUSTINE HYDROCHLORIDE
     Indication: B-CELL LYMPHOMA
     Dosage: UNK, 2 CYCLES
     Route: 065
     Dates: start: 201708, end: 201709
  14. CYTARABINE. [Suspect]
     Active Substance: CYTARABINE
     Indication: B-CELL LYMPHOMA
     Dosage: UNK UNK, CYCLICAL, UNK (4 CYCLES)
     Route: 065
     Dates: start: 201509, end: 201601
  15. OBINUTUZUMAB. [Suspect]
     Active Substance: OBINUTUZUMAB
     Dosage: UNK, CYCLICAL, 4 CYCLES
     Dates: start: 201703, end: 201706
  16. VINCRISTINE [Suspect]
     Active Substance: VINCRISTINE
     Indication: B-CELL LYMPHOMA
     Dosage: UNK UNK, CYCLICAL, 6 CYCLES
     Route: 065
     Dates: start: 2014
  17. DOXORUBICIN CONCENTRATE FOR SOLUTION FOR INFUSION [Suspect]
     Active Substance: DOXORUBICIN
     Indication: B-CELL LYMPHOMA
     Dosage: UNK UNK, CYCLICAL, 6 CYCLES
     Route: 042
     Dates: start: 2014
  18. MIRTAZAPINE. [Suspect]
     Active Substance: MIRTAZAPINE
     Indication: PRODUCT USED FOR UNKNOWN INDICATION
     Dosage: UNK
     Route: 065
  19. PREDNISOLONE. [Suspect]
     Active Substance: PREDNISOLONE
     Indication: B-CELL LYMPHOMA
     Dosage: UNK UNK, CYCLICAL, UNK (4 CYCLES)
     Route: 065
     Dates: start: 2014
  20. CYCLOPHOSPHAMIDE. [Suspect]
     Active Substance: CYCLOPHOSPHAMIDE
     Indication: B-CELL LYMPHOMA
     Dosage: 6 CYCLES
     Route: 065
     Dates: start: 2014
  21. RITUXIMAB. [Suspect]
     Active Substance: RITUXIMAB
     Indication: B-CELL LYMPHOMA
     Dosage: UNK UNK, CYCLICAL, 6 CYCLES
     Route: 065
     Dates: start: 2014
  22. OMEPRAZOLE. [Suspect]
     Active Substance: OMEPRAZOLE
     Indication: PRODUCT USED FOR UNKNOWN INDICATION
     Dosage: 10 MILLIGRAM
     Route: 065
  23. OBINUTUZUMAB. [Suspect]
     Active Substance: OBINUTUZUMAB
     Dosage: DOSAGE FORM: UNSPECIFIED, 2 CYCLES
     Route: 065
  24. CISPLATIN. [Suspect]
     Active Substance: CISPLATIN
     Indication: B-CELL LYMPHOMA
     Dosage: UNK , CYCLICAL, UNK (4 CYCLES)
     Route: 065
     Dates: start: 201509, end: 201601

REACTIONS (10)
  - Herpes zoster [Unknown]
  - Influenza [Unknown]
  - Suicide attempt [Unknown]
  - Psychotic disorder [Unknown]
  - Cough [Unknown]
  - Non-Hodgkin^s lymphoma recurrent [Unknown]
  - Pneumonia [Unknown]
  - Febrile neutropenia [Unknown]
  - Urinary tract infection bacterial [Unknown]
  - Depression [Unknown]

NARRATIVE: CASE EVENT DATE: 201409
